FAERS Safety Report 8157061-6 (Version None)
Quarter: 2012Q1

REPORT INFORMATION
  Report Type: 
  Country: None (occurrence: None)
  Receive Date: 20120222
  Receipt Date: 20120217
  Transmission Date: 20120608
  Serious: Yes (Death)
  Sender: FDA-Public Use
  Company Number: GB-ROCHE-1008052

PATIENT

DRUGS (4)
  1. LUCENTIS [Suspect]
     Dates: start: 20100604
  2. CLOZARIL [Concomitant]
  3. LUCENTIS [Suspect]
     Indication: AGE-RELATED MACULAR DEGENERATION
     Route: 050
     Dates: start: 20100507
  4. LUCENTIS [Suspect]
     Dates: start: 20100702

REACTIONS (1)
  - DEATH [None]
